FAERS Safety Report 4762542-9 (Version None)
Quarter: 2005Q3

REPORT INFORMATION
  Report Type: 
  Country: None (occurrence: None)
  Receive Date: 20050902
  Receipt Date: 20050622
  Transmission Date: 20060218
  Serious: Yes (Other)
  Sender: FDA-Public Use
  Company Number: 2005S1000535

PATIENT
  Age: 52 Year
  Sex: Female
  Weight: 56.246 kg

DRUGS (3)
  1. FENTANYL [Suspect]
     Indication: NEUROPATHY
     Dosage: 100 MCG/HR;Q3D;TDER
     Dates: start: 20050209
  2. DURAGESIC-100 [Suspect]
     Indication: NEUROPATHY
     Dosage: TDER
     Dates: start: 20050101, end: 20050209
  3. TRAMADOL [Concomitant]

REACTIONS (5)
  - DRUG INEFFECTIVE [None]
  - DYSPNOEA [None]
  - FEELING HOT [None]
  - HYPERHIDROSIS [None]
  - SOMNOLENCE [None]
